FAERS Safety Report 18767857 (Version 1)
Quarter: 2021Q1

REPORT INFORMATION
  Report Type: Spontaneous
  Country: US (occurrence: US)
  Receive Date: 20210120
  Receipt Date: 20210120
  Transmission Date: 20210419
  Serious: Yes (Hospitalization)
  Sender: FDA-Public Use
  Company Number: None

PATIENT
  Age: 89 Year
  Sex: Male
  Weight: 105 kg

DRUGS (1)
  1. GADOXETATE DISODIUM (GADOXETATE DISODIUM 181.43MG/ML INJ,SOLN) [Suspect]
     Active Substance: GADOXETATE DISODIUM
     Indication: MAGNETIC RESONANCE IMAGING
     Dosage: ?          OTHER DOSE:N/A UNITS;?
     Dates: start: 20201105, end: 20201105

REACTIONS (4)
  - Dyspnoea [None]
  - Contrast media reaction [None]
  - Palpitations [None]
  - Sinus tachycardia [None]

NARRATIVE: CASE EVENT DATE: 20201105
